FAERS Safety Report 15969149 (Version 1)
Quarter: 2019Q1

REPORT INFORMATION
  Report Type: Spontaneous
  Country: ES (occurrence: ES)
  Receive Date: 20190215
  Receipt Date: 20190215
  Transmission Date: 20190418
  Serious: Yes (Hospitalization)
  Sender: FDA-Public Use
  Company Number: ES-009507513-1902ESP004956

PATIENT
  Age: 95 Year
  Sex: Male

DRUGS (3)
  1. SITAGLIPTIN PHOSPHATE [Suspect]
     Active Substance: SITAGLIPTIN PHOSPHATE
     Indication: DIABETES MELLITUS
     Dates: start: 20181129, end: 20181205
  2. LORAZEPAM. [Suspect]
     Active Substance: LORAZEPAM
     Dosage: 0.5 MILLIGRAM, Q24H
     Dates: start: 2016, end: 20181205
  3. SEGURIL [Suspect]
     Active Substance: FUROSEMIDE
     Dosage: 1-1-0
     Route: 048
     Dates: start: 20181129, end: 20181205

REACTIONS (1)
  - Encephalopathy [Recovered/Resolved]

NARRATIVE: CASE EVENT DATE: 20181204
